FAERS Safety Report 10792496 (Version 1)
Quarter: 2015Q1

REPORT INFORMATION
  Report Type: Spontaneous
  Country: IT (occurrence: IT)
  Receive Date: 20150213
  Receipt Date: 20150213
  Transmission Date: 20150721
  Serious: Yes (Other)
  Sender: FDA-Public Use
  Company Number: PHHY2015IT010937

PATIENT
  Age: 40 Year
  Sex: Female

DRUGS (1)
  1. GILENYA [Suspect]
     Active Substance: FINGOLIMOD HYDROCHLORIDE
     Indication: MULTIPLE SCLEROSIS
     Dosage: UNK
     Route: 065
     Dates: start: 201301

REACTIONS (5)
  - Schirmer^s test abnormal [Unknown]
  - Hyperreflexia [Unknown]
  - Extensor plantar response [Unknown]
  - Sjogren^s syndrome [Unknown]
  - Nystagmus [Unknown]
